FAERS Safety Report 14987782 (Version 1)
Quarter: 2018Q2

REPORT INFORMATION
  Report Type: Spontaneous
  Country: US (occurrence: US)
  Receive Date: 20180608
  Receipt Date: 20180608
  Transmission Date: 20180711
  Serious: No
  Sender: FDA-Public Use
  Company Number: US-JNJFOC-20180533879

PATIENT
  Sex: Female

DRUGS (2)
  1. VISINE ORIGINAL REDNESS RELIEF [Suspect]
     Active Substance: TETRAHYDROZOLINE HYDROCHLORIDE
     Indication: PRODUCT USED FOR UNKNOWN INDICATION
     Route: 065
  2. VISINE ORIGINAL REDNESS RELIEF [Suspect]
     Active Substance: TETRAHYDROZOLINE HYDROCHLORIDE
     Route: 065

REACTIONS (1)
  - Drug ineffective [Unknown]
